FAERS Safety Report 8731828 (Version 3)
Quarter: 2013Q1

REPORT INFORMATION
  Report Type: Spontaneous
  Country: US (occurrence: US)
  Receive Date: 20120820
  Receipt Date: 20130225
  Transmission Date: 20140127
  Serious: Yes (Hospitalization)
  Sender: FDA-Public Use
  Company Number: US-BAYER-2012-083808

PATIENT
  Age: 21 Year
  Sex: Female
  Weight: 56.69 kg

DRUGS (6)
  1. YASMIN [Suspect]
     Indication: PREMENSTRUAL SYNDROME
     Dosage: UNK
     Dates: start: 20030901, end: 20041026
  2. B12 [Concomitant]
     Indication: VITAMIN SUPPLEMENTATION
     Dosage: UNK
     Dates: start: 2004
  3. MULTIVITAMINS [Concomitant]
     Indication: VITAMIN SUPPLEMENTATION
     Dosage: UNK
     Dates: start: 2004
  4. IRON [Concomitant]
     Indication: ANAEMIA
     Dosage: UNK
     Dates: start: 2004, end: 2005
  5. ADVIL [Concomitant]
     Indication: PAIN
     Dosage: 200 MG, UNK
     Dates: start: 200410
  6. FISH OIL [Concomitant]
     Dosage: UNK
     Dates: start: 20041117

REACTIONS (11)
  - Deep vein thrombosis [None]
  - Pelvic venous thrombosis [None]
  - Pain [None]
  - Injury [None]
  - General physical health deterioration [None]
  - Anxiety [None]
  - Emotional distress [None]
  - Pain [None]
  - Off label use [None]
  - Mental disorder [None]
  - Local swelling [None]
